FAERS Safety Report 7290047-2 (Version None)
Quarter: 2011Q1

REPORT INFORMATION
  Report Type: 
  Country: None (occurrence: None)
  Receive Date: 20110201
  Receipt Date: 20110115
  Transmission Date: 20110831
  Serious: Yes (Death, Life-Threatening, Other)
  Sender: FDA-Public Use
  Company Number: 2011AP000065

PATIENT
  Age: 19 Year
  Sex: Female

DRUGS (2)
  1. NORTRIPTYLINE HCL [Suspect]
     Indication: MAJOR DEPRESSION
     Dosage: 100 MG;HS
  2. RISPERIDONE [Suspect]
     Indication: PSYCHOTIC DISORDER
     Dosage: 5 MG ; 3 MG;QD

REACTIONS (8)
  - PULMONARY EMBOLISM [None]
  - LOSS OF CONSCIOUSNESS [None]
  - RESPIRATORY ARREST [None]
  - HYPOTENSION [None]
  - MYDRIASIS [None]
  - PULSE ABSENT [None]
  - HYPERPROLACTINAEMIA [None]
  - WEIGHT INCREASED [None]
